FAERS Safety Report 9397596 (Version 1)
Quarter: 2013Q3

REPORT INFORMATION
  Report Type: Spontaneous
  Country: TR (occurrence: TR)
  Receive Date: 20130712
  Receipt Date: 20130712
  Transmission Date: 20140515
  Serious: Yes (Other)
  Sender: FDA-Public Use
  Company Number: TR-B.I. PHARMACEUTICALS,INC./RIDGEFIELD-2013-BI-20347YA

PATIENT
  Sex: 0

DRUGS (1)
  1. TAMSULOSINA [Suspect]
     Route: 065

REACTIONS (2)
  - Floppy iris syndrome [Unknown]
  - Posterior capsule rupture [Unknown]
